FAERS Safety Report 21333297 (Version 2)
Quarter: 2022Q4

REPORT INFORMATION
  Report Type: Report from Study
  Country: US (occurrence: US)
  Receive Date: 20220914
  Receipt Date: 20221226
  Transmission Date: 20230113
  Serious: Yes (Hospitalization)
  Sender: FDA-Public Use
  Company Number: US-GW PHARMA-2022-US-028983

PATIENT
  Sex: Male

DRUGS (4)
  1. EPIDIOLEX [Suspect]
     Active Substance: CANNABIDIOL
     Indication: Lennox-Gastaut syndrome
     Dosage: 1.4 MILLILITER
     Dates: start: 20210521
  2. EPIDIOLEX [Suspect]
     Active Substance: CANNABIDIOL
     Indication: Partial seizures
     Dosage: 1.6 MILLILITER, BID
     Dates: start: 202211
  3. EPIDIOLEX [Suspect]
     Active Substance: CANNABIDIOL
     Indication: Epilepsy
  4. EPIDIOLEX [Suspect]
     Active Substance: CANNABIDIOL
     Indication: Idiopathic partial epilepsy

REACTIONS (2)
  - Hospitalisation [Unknown]
  - Emergency care [Unknown]
